FAERS Safety Report 8408705-2 (Version None)
Quarter: 2012Q2

REPORT INFORMATION
  Report Type: 
  Country: None (occurrence: None)
  Receive Date: 20120604
  Receipt Date: 20120524
  Transmission Date: 20120825
  Serious: Yes (Hospitalization)
  Sender: FDA-Public Use
  Company Number: FR-FRI-1000030979

PATIENT
  Sex: Male

DRUGS (2)
  1. TELMISARTAN [Concomitant]
     Indication: HYPERTENSION
     Dosage: 40 MG
     Route: 048
  2. ESCITALOPRAM [Suspect]
     Indication: DEPRESSION
     Dosage: 10 MG
     Route: 048
     Dates: start: 20120220, end: 20120229

REACTIONS (2)
  - DISINHIBITION [None]
  - SUICIDE ATTEMPT [None]
